FAERS Safety Report 19232293 (Version 1)
Quarter: 2021Q2

REPORT INFORMATION
  Report Type: Spontaneous
  Country: US (occurrence: US)
  Receive Date: 20210507
  Receipt Date: 20210507
  Transmission Date: 20210717
  Serious: Yes (Hospitalization, Other)
  Sender: FDA-Public Use
  Company Number: US-SCIEGENPHARMA-2021SCILIT00416

PATIENT
  Age: 31 Year
  Sex: Male

DRUGS (7)
  1. PREGABALIN. [Interacting]
     Active Substance: PREGABALIN
     Indication: SUPPORTIVE CARE
     Route: 065
  2. DIVALPROEX SODIUM. [Interacting]
     Active Substance: DIVALPROEX SODIUM
     Indication: SEIZURE
     Route: 065
  3. PERPHENAZINE. [Interacting]
     Active Substance: PERPHENAZINE
     Indication: SUPPORTIVE CARE
     Route: 065
  4. GABAPENTIN TABLETS [Suspect]
     Active Substance: GABAPENTIN
     Indication: BACK PAIN
     Route: 065
  5. OXYCODONE [Concomitant]
     Active Substance: OXYCODONE
     Indication: PRODUCT USED FOR UNKNOWN INDICATION
     Route: 065
  6. OLANZAPINE. [Interacting]
     Active Substance: OLANZAPINE
     Indication: INSOMNIA
     Route: 065
  7. PHENOBARBITAL. [Interacting]
     Active Substance: PHENOBARBITAL
     Indication: SUPPORTIVE CARE
     Route: 065

REACTIONS (8)
  - Myalgia [Unknown]
  - Drug abuse [Unknown]
  - Drug use disorder [Unknown]
  - Pyrexia [Unknown]
  - Drug dependence [Unknown]
  - Drug withdrawal convulsions [Unknown]
  - Withdrawal syndrome [Unknown]
  - Asthenia [Unknown]
